FAERS Safety Report 25219515 (Version 1)
Quarter: 2025Q2

REPORT INFORMATION
  Report Type: Spontaneous
  Country: CA (occurrence: CA)
  Receive Date: 20250421
  Receipt Date: 20250421
  Transmission Date: 20250716
  Serious: Yes (Death, Hospitalization, Other)
  Sender: MYLAN
  Company Number: CA-MYLANLABS-2025M1033879

PATIENT
  Age: 75 Year
  Sex: Female
  Weight: 58 kg

DRUGS (52)
  1. GABAPENTIN [Suspect]
     Active Substance: GABAPENTIN
     Indication: Back pain
  2. GABAPENTIN [Suspect]
     Active Substance: GABAPENTIN
     Route: 065
  3. GABAPENTIN [Suspect]
     Active Substance: GABAPENTIN
     Route: 065
  4. GABAPENTIN [Suspect]
     Active Substance: GABAPENTIN
  5. CHORIONIC GONADOTROPIN [Suspect]
     Active Substance: CHORIOGONADOTROPIN ALFA
     Indication: Paroxysmal nocturnal haemoglobinuria
  6. CHORIONIC GONADOTROPIN [Suspect]
     Active Substance: CHORIOGONADOTROPIN ALFA
     Route: 058
  7. CHORIONIC GONADOTROPIN [Suspect]
     Active Substance: CHORIOGONADOTROPIN ALFA
     Route: 058
  8. CHORIONIC GONADOTROPIN [Suspect]
     Active Substance: CHORIOGONADOTROPIN ALFA
  9. CHORIONIC GONADOTROPIN [Suspect]
     Active Substance: CHORIOGONADOTROPIN ALFA
     Indication: Paroxysmal nocturnal haemoglobinuria
  10. CHORIONIC GONADOTROPIN [Suspect]
     Active Substance: CHORIOGONADOTROPIN ALFA
     Route: 058
  11. CHORIONIC GONADOTROPIN [Suspect]
     Active Substance: CHORIOGONADOTROPIN ALFA
     Route: 058
  12. CHORIONIC GONADOTROPIN [Suspect]
     Active Substance: CHORIOGONADOTROPIN ALFA
  13. APIXABAN [Concomitant]
     Active Substance: APIXABAN
     Indication: Atrial fibrillation
  14. APIXABAN [Concomitant]
     Active Substance: APIXABAN
     Route: 048
  15. APIXABAN [Concomitant]
     Active Substance: APIXABAN
     Route: 048
  16. APIXABAN [Concomitant]
     Active Substance: APIXABAN
  17. ATORVASTATIN [Concomitant]
     Active Substance: ATORVASTATIN
     Indication: Dyslipidaemia
  18. ATORVASTATIN [Concomitant]
     Active Substance: ATORVASTATIN
     Route: 048
  19. ATORVASTATIN [Concomitant]
     Active Substance: ATORVASTATIN
     Route: 048
  20. ATORVASTATIN [Concomitant]
     Active Substance: ATORVASTATIN
  21. BISOPROLOL [Concomitant]
     Active Substance: BISOPROLOL
     Indication: Product used for unknown indication
  22. BISOPROLOL [Concomitant]
     Active Substance: BISOPROLOL
     Route: 065
  23. BISOPROLOL [Concomitant]
     Active Substance: BISOPROLOL
     Route: 065
  24. BISOPROLOL [Concomitant]
     Active Substance: BISOPROLOL
  25. CALQUENCE [Concomitant]
     Active Substance: ACALABRUTINIB
     Indication: Product used for unknown indication
  26. CALQUENCE [Concomitant]
     Active Substance: ACALABRUTINIB
     Route: 065
  27. CALQUENCE [Concomitant]
     Active Substance: ACALABRUTINIB
     Route: 065
  28. CALQUENCE [Concomitant]
     Active Substance: ACALABRUTINIB
  29. EPOETIN ALFA [Concomitant]
     Active Substance: ERYTHROPOIETIN
     Indication: Anaemia
  30. EPOETIN ALFA [Concomitant]
     Active Substance: ERYTHROPOIETIN
     Route: 058
  31. EPOETIN ALFA [Concomitant]
     Active Substance: ERYTHROPOIETIN
     Route: 058
  32. EPOETIN ALFA [Concomitant]
     Active Substance: ERYTHROPOIETIN
  33. FUROSEMIDE [Concomitant]
     Active Substance: FUROSEMIDE
     Indication: Product used for unknown indication
  34. FUROSEMIDE [Concomitant]
     Active Substance: FUROSEMIDE
     Route: 065
  35. FUROSEMIDE [Concomitant]
     Active Substance: FUROSEMIDE
     Route: 065
  36. FUROSEMIDE [Concomitant]
     Active Substance: FUROSEMIDE
  37. PENICILLIN V POTASSIUM [Concomitant]
     Active Substance: PENICILLIN V POTASSIUM
     Indication: Prophylaxis
  38. PENICILLIN V POTASSIUM [Concomitant]
     Active Substance: PENICILLIN V POTASSIUM
     Route: 048
  39. PENICILLIN V POTASSIUM [Concomitant]
     Active Substance: PENICILLIN V POTASSIUM
     Route: 048
  40. PENICILLIN V POTASSIUM [Concomitant]
     Active Substance: PENICILLIN V POTASSIUM
  41. SPIRONOLACTONE [Concomitant]
     Active Substance: SPIRONOLACTONE
     Indication: Product used for unknown indication
  42. SPIRONOLACTONE [Concomitant]
     Active Substance: SPIRONOLACTONE
     Route: 065
  43. SPIRONOLACTONE [Concomitant]
     Active Substance: SPIRONOLACTONE
     Route: 065
  44. SPIRONOLACTONE [Concomitant]
     Active Substance: SPIRONOLACTONE
  45. VITAMIN D [Concomitant]
     Active Substance: VITAMIN D NOS
     Indication: Product used for unknown indication
  46. VITAMIN D [Concomitant]
     Active Substance: VITAMIN D NOS
     Route: 065
  47. VITAMIN D [Concomitant]
     Active Substance: VITAMIN D NOS
     Route: 065
  48. VITAMIN D [Concomitant]
     Active Substance: VITAMIN D NOS
  49. ZYLOPRIM [Concomitant]
     Active Substance: ALLOPURINOL
     Indication: Product used for unknown indication
  50. ZYLOPRIM [Concomitant]
     Active Substance: ALLOPURINOL
     Route: 065
  51. ZYLOPRIM [Concomitant]
     Active Substance: ALLOPURINOL
     Route: 065
  52. ZYLOPRIM [Concomitant]
     Active Substance: ALLOPURINOL

REACTIONS (22)
  - Acute kidney injury [Fatal]
  - Anxiety [Fatal]
  - Back pain [Fatal]
  - Breakthrough haemolysis [Fatal]
  - Confusional state [Fatal]
  - Decreased appetite [Fatal]
  - Dehydration [Fatal]
  - Depression [Fatal]
  - Dyspnoea [Fatal]
  - Fatigue [Fatal]
  - Haemoglobin decreased [Fatal]
  - Haemolysis [Fatal]
  - Infusion site bruising [Fatal]
  - Infusion site erythema [Fatal]
  - Malaise [Fatal]
  - Oligodipsia [Fatal]
  - Pain [Fatal]
  - Purpura [Fatal]
  - Sitting disability [Fatal]
  - Somnolence [Fatal]
  - Unresponsive to stimuli [Fatal]
  - Drug ineffective [Fatal]
